FAERS Safety Report 13119677 (Version 2)
Quarter: 2017Q1

REPORT INFORMATION
  Report Type: Spontaneous
  Country: GB (occurrence: GB)
  Receive Date: 20170117
  Receipt Date: 20170130
  Transmission Date: 20170428
  Serious: Yes (Hospitalization)
  Sender: FDA-Public Use
  Company Number: GB-ROCHE-1879806

PATIENT
  Sex: Female

DRUGS (4)
  1. XOLAIR [Suspect]
     Active Substance: OMALIZUMAB
     Dosage: MOST RECENT DOSE PRIOR TO THE EVENT
     Route: 065
     Dates: start: 20161207
  2. PENICILLIN V [Concomitant]
     Active Substance: PENICILLIN V
     Indication: PRODUCT USED FOR UNKNOWN INDICATION
     Dosage: 1000 MG, QID (FOR 7 DAYS)
     Route: 048
     Dates: start: 20161210
  3. METRONIDAZOLE. [Concomitant]
     Active Substance: METRONIDAZOLE
     Indication: PRODUCT USED FOR UNKNOWN INDICATION
     Dosage: 400 MG, TID (FOR 4 DAYS)
     Route: 048
     Dates: start: 20161210
  4. XOLAIR [Suspect]
     Active Substance: OMALIZUMAB
     Indication: PRODUCT USED FOR UNKNOWN INDICATION
     Route: 065
     Dates: start: 20151230

REACTIONS (1)
  - Tonsillitis [Recovered/Resolved with Sequelae]

NARRATIVE: CASE EVENT DATE: 20161209
